FAERS Safety Report 15346145 (Version 1)
Quarter: 2018Q3

REPORT INFORMATION
  Report Type: Report from Study
  Country: FR (occurrence: FR)
  Receive Date: 20180904
  Receipt Date: 20180904
  Transmission Date: 20181010
  Serious: Yes (Other)
  Sender: FDA-Public Use
  Company Number: FR-TEVA-2018-FR-951179

PATIENT
  Age: 67 Year
  Sex: Female
  Weight: 55 kg

DRUGS (17)
  1. IRINOTECAN HCL [Suspect]
     Active Substance: IRINOTECAN HYDROCHLORIDE
     Route: 042
     Dates: start: 20120814
  2. ERBITUX [Suspect]
     Active Substance: CETUXIMAB
     Route: 042
     Dates: start: 20120808
  3. TOLEXINE [Concomitant]
     Active Substance: DOXYCYCLINE
     Indication: DERMATITIS ACNEIFORM
     Dosage: UNK
     Dates: end: 201207
  4. IRINOTECAN HCL [Suspect]
     Active Substance: IRINOTECAN HYDROCHLORIDE
     Route: 042
     Dates: start: 20120801, end: 20120829
  5. FLUOROURACILE PFIZER [Suspect]
     Active Substance: FLUOROURACIL
     Dosage: 650 MG, CYCLIC
     Route: 042
     Dates: start: 20120822, end: 20120829
  6. FLUOROURACILE PFIZER [Suspect]
     Active Substance: FLUOROURACIL
     Route: 042
     Dates: start: 20120801, end: 20120829
  7. IRINOTECAN HCL [Suspect]
     Active Substance: IRINOTECAN HYDROCHLORIDE
     Indication: RECTAL CANCER METASTATIC
     Dosage: UNK
     Route: 042
     Dates: start: 20120412
  8. FLUOROURACILE PFIZER [Suspect]
     Active Substance: FLUOROURACIL
     Route: 042
     Dates: start: 20120814
  9. ERBITUX [Suspect]
     Active Substance: CETUXIMAB
     Dosage: 390 MG, CYCLIC
     Route: 042
     Dates: start: 20120814
  10. ERBITUX [Suspect]
     Active Substance: CETUXIMAB
     Route: 042
     Dates: start: 20120412
  11. FOLINIC ACID [Suspect]
     Active Substance: LEUCOVORIN
     Indication: RECTAL CANCER METASTATIC
     Dates: start: 20120412
  12. FLUOROURACILE PFIZER [Suspect]
     Active Substance: FLUOROURACIL
     Route: 042
     Dates: start: 20120814
  13. FLUOROURACILE PFIZER [Suspect]
     Active Substance: FLUOROURACIL
     Route: 042
     Dates: start: 20120412
  14. ERBITUX [Suspect]
     Active Substance: CETUXIMAB
     Route: 042
     Dates: start: 20120801
  15. ERBITUX [Suspect]
     Active Substance: CETUXIMAB
     Route: 042
     Dates: start: 20120905
  16. FLUOROURACILE PFIZER [Suspect]
     Active Substance: FLUOROURACIL
     Route: 042
     Dates: start: 20120801
  17. ERBITUX [Suspect]
     Active Substance: CETUXIMAB
     Route: 042
     Dates: start: 20120822

REACTIONS (1)
  - Photosensitivity reaction [Recovering/Resolving]

NARRATIVE: CASE EVENT DATE: 20120719
